FAERS Safety Report 23934458 (Version 1)
Quarter: 2024Q2

REPORT INFORMATION
  Report Type: Spontaneous
  Country: US (occurrence: US)
  Receive Date: 20240603
  Receipt Date: 20240603
  Transmission Date: 20240715
  Serious: Yes (Other)
  Sender: FDA-Public Use
  Company Number: US-BRISTOL-MYERS SQUIBB COMPANY-2024-086912

PATIENT
  Age: 67 Year
  Sex: Female

DRUGS (4)
  1. ORENCIA [Suspect]
     Active Substance: ABATACEPT
     Indication: Psoriasis
     Route: 058
     Dates: start: 202201
  2. OPSUMIT [Concomitant]
     Active Substance: MACITENTAN
     Indication: Product used for unknown indication
  3. UPTRAVI [Concomitant]
     Active Substance: SELEXIPAG
     Indication: Product used for unknown indication
  4. ADEMPAS [Concomitant]
     Active Substance: RIOCIGUAT
     Indication: Product used for unknown indication

REACTIONS (3)
  - Syncope [Unknown]
  - Peripheral swelling [Unknown]
  - Mood altered [Unknown]
